FAERS Safety Report 15761378 (Version 2)
Quarter: 2019Q1

REPORT INFORMATION
  Report Type: Spontaneous
  Country: US (occurrence: US)
  Receive Date: 20181226
  Receipt Date: 20190104
  Transmission Date: 20190417
  Serious: Yes (Hospitalization)
  Sender: FDA-Public Use
  Company Number: US-VERTEX PHARMACEUTICALS-2018-009812

PATIENT
  Age: 49 Year
  Sex: Male

DRUGS (3)
  1. SYMDEKO [Suspect]
     Active Substance: IVACAFTOR\TEZACAFTOR
     Indication: CYSTIC FIBROSIS
     Dosage: 100 MG TEZACAFTOR/ 150 MG IVACAFTOR AM; 150 MG IVACAFTOR PM
     Route: 048
     Dates: start: 20180926
  2. PERTZYE [Concomitant]
     Active Substance: PANCRELIPASE AMYLASE\PANCRELIPASE LIPASE\PANCRELIPASE PROTEASE
     Dosage: 7 CS WITH MEALS AND 3 CS WITH SNACKS
  3. LEVALBUTEROL                       /01419301/ [Concomitant]
     Active Substance: LEVALBUTEROL

REACTIONS (2)
  - Dyspnoea [Recovered/Resolved]
  - Forced expiratory volume decreased [Recovered/Resolved]

NARRATIVE: CASE EVENT DATE: 20181128
